FAERS Safety Report 4511831-1 (Version None)
Quarter: 2004Q4

REPORT INFORMATION
  Report Type: 
  Country: None (occurrence: None)
  Receive Date: 20041129
  Receipt Date: 20041118
  Transmission Date: 20050328
  Serious: Yes (Hospitalization)
  Sender: FDA-Public Use
  Company Number: DE-MERCK-0411DEU00398

PATIENT
  Age: 20 Year
  Sex: Female

DRUGS (1)
  1. MAXALT [Suspect]
     Indication: HEADACHE
     Route: 048

REACTIONS (2)
  - DRUG INEFFECTIVE [None]
  - HEAD INJURY [None]
